FAERS Safety Report 5377710-5 (Version None)
Quarter: 2007Q3

REPORT INFORMATION
  Report Type: 
  Country: None (occurrence: None)
  Receive Date: 20070703
  Receipt Date: 20070612
  Transmission Date: 20080115
  Serious: Yes (Disabling, Other)
  Sender: FDA-Public Use
  Company Number: FR-BOEHRINGER INGELHEIM PHARMACEUTICALS, INC.-2007-FF-00679FF

PATIENT
  Sex: Female
  Weight: 78 kg

DRUGS (7)
  1. SIFROL [Suspect]
     Indication: PARKINSON'S DISEASE
     Route: 048
     Dates: start: 20061115, end: 20070315
  2. SIFROL [Suspect]
     Route: 048
  3. PERINDOPRIL ERBUMINE [Concomitant]
  4. MODOPAR [Concomitant]
  5. MANTADIX [Concomitant]
  6. LESCOL [Concomitant]
  7. LEVOTHYROXINE SODIUM [Concomitant]

REACTIONS (7)
  - BLINDNESS [None]
  - GAMBLING [None]
  - HALLUCINATION, VISUAL [None]
  - NAUSEA [None]
  - OEDEMA [None]
  - SLEEP DISORDER [None]
  - WEIGHT INCREASED [None]
